FAERS Safety Report 7531208-4 (Version None)
Quarter: 2011Q2

REPORT INFORMATION
  Report Type: 
  Country: None (occurrence: None)
  Receive Date: 20110527
  Receipt Date: 20110519
  Transmission Date: 20111010
  Serious: Yes (Other)
  Sender: FDA-Public Use
  Company Number: 2011SP023080

PATIENT
  Age: 71 Year
  Sex: Male

DRUGS (8)
  1. LANSOPRAZOLE [Concomitant]
  2. MOVIPREP [Concomitant]
  3. DEXAMETHASONE [Suspect]
     Indication: CHEMOTHERAPY
     Dates: start: 20110511
  4. OXYCONTIN [Concomitant]
  5. CAPECITABINE [Concomitant]
  6. OXALIPLATIN [Concomitant]
  7. NAPROXEN [Concomitant]
  8. OXYCODONE HCL [Concomitant]

REACTIONS (1)
  - SNEEZING [None]
